FAERS Safety Report 9271145 (Version 2)
Quarter: 2013Q2

REPORT INFORMATION
  Report Type: Report from Study
  Country: CL (occurrence: CL)
  Receive Date: 20130506
  Receipt Date: 20130516
  Transmission Date: 20140414
  Serious: Yes (Other)
  Sender: FDA-Public Use
  Company Number: PHHY2013CL043922

PATIENT
  Age: 70 Year
  Sex: Female

DRUGS (8)
  1. TAREG D [Suspect]
     Indication: HYPERTENSION
     Dosage: 1 DF, (320 MG VALS/ 12,5 MG HYDRO) A DAY
     Route: 048
     Dates: start: 200812
  2. ZIAC [Concomitant]
     Indication: PALPITATIONS
     Dosage: UNK UKN, UNK
  3. EUTIROX [Concomitant]
     Indication: THYROID DISORDER
     Dosage: UNK UKN, UNK
  4. CLONAZEPAM [Concomitant]
     Indication: NERVOUSNESS
     Dosage: UNK UKN, UNK
  5. RECAXIN DUO [Concomitant]
     Dosage: UNK UKN, UNK
  6. PARACETAMOL [Concomitant]
     Indication: PAIN
     Dosage: UNK UKN, UNK
  7. PARACETAMOL [Concomitant]
     Indication: OSTEOARTHRITIS
  8. GEMFIBROZIL [Concomitant]
     Indication: BLOOD TRIGLYCERIDES
     Dosage: UNK UKN, UNK

REACTIONS (9)
  - Bronchopneumonia [Recovering/Resolving]
  - Alveolitis allergic [Recovering/Resolving]
  - Depression [Not Recovered/Not Resolved]
  - Osteoarthritis [Not Recovered/Not Resolved]
  - Malaise [Unknown]
  - Memory impairment [Not Recovered/Not Resolved]
  - Dizziness [Recovering/Resolving]
  - Chest pain [Recovering/Resolving]
  - Headache [Recovering/Resolving]
